FAERS Safety Report 6206120-3 (Version None)
Quarter: 2009Q2

REPORT INFORMATION
  Report Type: 
  Country: None (occurrence: None)
  Receive Date: 20090528
  Receipt Date: 20090126
  Transmission Date: 20091009
  Serious: No
  Sender: FDA-Public Use
  Company Number: US-KINGPHARMUSA00001-K200900088

PATIENT
  Sex: Female

DRUGS (7)
  1. AVINZA [Suspect]
     Indication: PAIN
     Dosage: UNK
     Route: 048
     Dates: start: 20090101
  2. LISINOPRIL [Concomitant]
     Indication: HYPERTENSION
     Dosage: UNK
  3. METFORMIN HCL [Concomitant]
     Indication: DIABETES MELLITUS
     Dosage: UNK
  4. LANTUS [Concomitant]
     Indication: DIABETES MELLITUS
     Dosage: UNK
  5. HUMALOG [Concomitant]
     Indication: DIABETES MELLITUS
     Dosage: UNK
  6. EFFEXOR [Concomitant]
     Dosage: UNK
  7. NEURONTIN [Concomitant]
     Indication: PAIN
     Dosage: UNK

REACTIONS (1)
  - NAUSEA [None]
